FAERS Safety Report 7213575-4 (Version None)
Quarter: 2011Q1

REPORT INFORMATION
  Report Type: 
  Country: None (occurrence: None)
  Receive Date: 20110106
  Receipt Date: 20101230
  Transmission Date: 20110831
  Serious: Yes (Other)
  Sender: FDA-Public Use
  Company Number: US-JNJCH-2011000240

PATIENT
  Age: 57 Year
  Sex: Female

DRUGS (3)
  1. IBROPROFIN [Concomitant]
     Indication: PRODUCT USED FOR UNKNOWN INDICATION
     Route: 065
  2. LISTERINE WHITENING QUICK DISSOLVING STRIPS [Suspect]
     Indication: DENTAL CARE
     Dosage: TEXT:TWO STRIPS TWICE PER DAY
     Route: 048
     Dates: start: 20101227, end: 20101228
  3. ATENOLOL [Concomitant]
     Indication: BLOOD PRESSURE
     Dosage: TEXT:ONE PER DAY
     Route: 065

REACTIONS (6)
  - APPLICATION SITE BURN [None]
  - LIP SWELLING [None]
  - ORAL HERPES [None]
  - HYPERSENSITIVITY [None]
  - PAIN [None]
  - EATING DISORDER [None]
